FAERS Safety Report 14965983 (Version 2)
Quarter: 2018Q2

REPORT INFORMATION
  Report Type: Report from Study
  Country: US (occurrence: US)
  Receive Date: 20180603
  Receipt Date: 20180625
  Transmission Date: 20180711
  Serious: No
  Sender: FDA-Public Use
  Company Number: PHEH2018US021048

PATIENT
  Age: 66 Year
  Sex: Male
  Weight: 71.66 kg

DRUGS (2)
  1. COSENTYX [Suspect]
     Active Substance: SECUKINUMAB
     Indication: PSORIASIS
     Dosage: 300 MG, QMO
     Route: 058
     Dates: start: 201802
  2. COSENTYX [Suspect]
     Active Substance: SECUKINUMAB
     Indication: PSORIATIC ARTHROPATHY

REACTIONS (6)
  - Vein discolouration [Unknown]
  - Vein disorder [Unknown]
  - Dry skin [Unknown]
  - Malaise [Unknown]
  - Paraesthesia [Unknown]
  - Fungal infection [Unknown]

NARRATIVE: CASE EVENT DATE: 20180614
